FAERS Safety Report 7067357-7 (Version None)
Quarter: 2010Q4

REPORT INFORMATION
  Report Type: 
  Country: None (occurrence: None)
  Receive Date: 20101022
  Receipt Date: 20101022
  Transmission Date: 20110411
  Serious: Yes (Hospitalization)
  Sender: FDA-Public Use
  Company Number: None

PATIENT
  Sex: Female
  Weight: 80.2 kg

DRUGS (6)
  1. FLUDARABINE PHOSPHATE [Suspect]
     Dosage: 147 MG
     Dates: end: 20101014
  2. RITUXIMAB (MOAB C2B8 ANTI CD20, CHIMERIC) [Suspect]
     Dosage: 730 MG
     Dates: end: 20101011
  3. ACETAMINOPHEN [Concomitant]
  4. DEXAMETHASONE [Concomitant]
  5. DIPHENHYDRAMINE HCL [Concomitant]
  6. ONDANSETRON [Concomitant]

REACTIONS (6)
  - GASTROINTESTINAL INFECTION [None]
  - GENITOURINARY TRACT INFECTION [None]
  - HEADACHE [None]
  - NAUSEA [None]
  - PYREXIA [None]
  - UPPER RESPIRATORY TRACT INFECTION [None]
